FAERS Safety Report 7867487-3 (Version None)
Quarter: 2011Q4

REPORT INFORMATION
  Report Type: 
  Country: None (occurrence: None)
  Receive Date: 20111028
  Receipt Date: 20111017
  Transmission Date: 20120403
  Serious: Yes (Other)
  Sender: FDA-Public Use
  Company Number: PHHY2011BR92567

PATIENT
  Sex: Female
  Weight: 88 kg

DRUGS (7)
  1. TEGRETOL-XR [Suspect]
     Dosage: 400 MG, DAILY
     Route: 048
  2. BROMAZEPAM [Concomitant]
     Indication: ANXIETY
     Dosage: 1 DF, DAILY
     Route: 048
  3. PANTOPRAZOLE [Concomitant]
     Indication: LUMBAR HERNIA
     Dosage: 1 DF, DAILY
     Route: 048
  4. MODURETIC 5-50 [Concomitant]
     Indication: HYPERTENSION
     Dosage: 1 DF, DAILY
     Route: 048
  5. TEGRETOL-XR [Suspect]
     Indication: TREMOR
     Dosage: 200 MG, QHS
     Route: 048
  6. TEGRETOL-XR [Suspect]
     Dosage: 200 MG 2 TABLETS DAILY
     Route: 048
     Dates: start: 20111017
  7. LEVOTHYROXINE SODIUM [Concomitant]
     Indication: HYPOTHYROIDISM
     Dosage: 1 DF, QD
     Route: 048

REACTIONS (8)
  - FALL [None]
  - ASTHENIA [None]
  - ORAL DISORDER [None]
  - TRIGEMINAL NEURALGIA [None]
  - ASTHMA [None]
  - MUSCLE SPASMS [None]
  - SPEECH DISORDER [None]
  - MUSCULAR WEAKNESS [None]
